FAERS Safety Report 21314189 (Version 3)
Quarter: 2023Q2

REPORT INFORMATION
  Report Type: Report from Study
  Country: NL (occurrence: NL)
  Receive Date: 20220909
  Receipt Date: 20230410
  Transmission Date: 20230721
  Serious: Yes (Life-Threatening, Hospitalization, Other)
  Sender: FDA-Public Use
  Company Number: NL-AstraZeneca-2022-49907

PATIENT
  Age: 65 Year
  Sex: Female

DRUGS (59)
  1. FAM-TRASTUZUMAB DERUXTECAN-NXKI [Suspect]
     Active Substance: FAM-TRASTUZUMAB DERUXTECAN-NXKI
     Indication: HER2 positive gastric cancer
     Dosage: 6.4 MG/KG, ONCE EVERY 3 WK
     Route: 042
  2. CAPECITABINE [Suspect]
     Active Substance: CAPECITABINE
     Indication: HER2 positive gastric cancer
     Dosage: 1000 MG/M2, ONCE EVERY 3 WK
     Route: 048
     Dates: start: 20220701, end: 20220707
  3. CAPECITABINE [Suspect]
     Active Substance: CAPECITABINE
     Dosage: 1000 MG/M2, ONCE EVERY 3 WK
     Route: 048
     Dates: start: 20220722, end: 20220728
  4. PEMBROLIZUMAB [Suspect]
     Active Substance: PEMBROLIZUMAB
     Indication: HER2 positive gastric cancer
     Dosage: 200 MG, ONCE EVERY 3 WK
     Route: 042
     Dates: start: 20220701, end: 20220701
  5. PEMBROLIZUMAB [Suspect]
     Active Substance: PEMBROLIZUMAB
     Dosage: 200 MG, ONCE EVERY 3 WK
     Route: 042
     Dates: start: 20220722, end: 20220722
  6. CINACALCET [Concomitant]
     Active Substance: CINACALCET
     Indication: Hyperparathyroidism primary
     Dosage: 30 MG, QD
     Route: 048
     Dates: end: 20220729
  7. HYDROXOCOBALAMIN [Concomitant]
     Active Substance: HYDROXOCOBALAMIN
     Indication: Pernicious anaemia
     Dosage: 1000 UG, ONCE EVERY 3 MO
     Route: 058
  8. LEVOTHYROXINE [Concomitant]
     Active Substance: LEVOTHYROXINE
     Indication: Hypothyroidism
     Dosage: 100 UG, QD
     Route: 048
     Dates: start: 20220722, end: 20220722
  9. LEVOTHYROXINE [Concomitant]
     Active Substance: LEVOTHYROXINE
     Dosage: 25.0 UG  5DD
     Route: 048
     Dates: start: 20220722, end: 20220728
  10. INSULIN ASPART [Concomitant]
     Active Substance: INSULIN ASPART
     Indication: Type 2 diabetes mellitus
     Dosage: 8.0 IU 3DD IF NEEDED
     Route: 058
     Dates: start: 20220613
  11. INSULIN GLARGINE [Concomitant]
     Active Substance: INSULIN GLARGINE
     Indication: Type 2 diabetes mellitus
     Dosage: 6 IU, QD
     Route: 058
  12. INSULIN GLARGINE [Concomitant]
     Active Substance: INSULIN GLARGINE
     Dosage: 10 IU, QD
     Route: 058
     Dates: start: 20220804, end: 20220805
  13. INSULIN GLARGINE [Concomitant]
     Active Substance: INSULIN GLARGINE
     Dosage: 12 IU, QD
     Route: 058
     Dates: start: 20220805, end: 20220807
  14. INSULIN GLARGINE [Concomitant]
     Active Substance: INSULIN GLARGINE
     Dosage: 18 IU, QD
     Route: 058
     Dates: start: 20220808, end: 20220808
  15. INSULIN GLARGINE [Concomitant]
     Active Substance: INSULIN GLARGINE
     Dosage: 20 IU, QD
     Route: 058
     Dates: start: 20220804, end: 20220809
  16. INSULIN GLARGINE [Concomitant]
     Active Substance: INSULIN GLARGINE
     Dosage: 26 IU, QD
     Route: 058
     Dates: start: 20220809, end: 20220810
  17. INSULIN GLARGINE [Concomitant]
     Active Substance: INSULIN GLARGINE
     Dosage: 32 IU, QD
     Route: 058
     Dates: start: 20220810, end: 20220818
  18. INSULIN GLARGINE [Concomitant]
     Active Substance: INSULIN GLARGINE
     Dosage: 36 IU, QD
     Route: 058
     Dates: start: 20220818, end: 20220819
  19. POLYETHYLENE GLYCOLS [Concomitant]
     Active Substance: POLYETHYLENE GLYCOLS
     Indication: Constipation
     Dosage: 10.0 G  2DD IF NEEDED
     Route: 048
     Dates: start: 20220617, end: 20220710
  20. METOCLOPRAMIDE [Concomitant]
     Active Substance: METOCLOPRAMIDE
     Indication: Antiemetic supportive care
     Dosage: 10.0 MG  3DD IF NEEDED
     Route: 048
     Dates: start: 20220701, end: 20220824
  21. METOCLOPRAMIDE [Concomitant]
     Active Substance: METOCLOPRAMIDE
     Indication: Vomiting
  22. ONDANSETRON [Concomitant]
     Active Substance: ONDANSETRON
     Indication: Nausea
     Dosage: 8 MG, ONCE EVERY 12HR
     Route: 048
     Dates: start: 20220701, end: 20220824
  23. LOPERAMIDE [Concomitant]
     Active Substance: LOPERAMIDE
     Indication: Diarrhoea
     Dosage: 2.0 MG  8DD IF NEEDED
     Route: 048
     Dates: start: 20220707, end: 20220822
  24. CODEINE [Concomitant]
     Active Substance: CODEINE
     Indication: Diarrhoea
     Dosage: 20 MG, ONCE EVERY 8HR
     Route: 048
     Dates: start: 20220731, end: 20220802
  25. CEFTRIAXONE [Concomitant]
     Active Substance: CEFTRIAXONE
     Indication: Febrile neutropenia
     Dosage: 2000 MG, QD
     Route: 042
     Dates: start: 20220730, end: 20220803
  26. CEFTRIAXONE [Concomitant]
     Active Substance: CEFTRIAXONE
     Indication: Pneumonia
  27. NADROPARIN [Concomitant]
     Active Substance: NADROPARIN
     Indication: Deep vein thrombosis
     Dosage: 7600 IU, ONCE EVERY 12HR
     Route: 058
     Dates: start: 20220803, end: 20220824
  28. NADROPARIN [Concomitant]
     Active Substance: NADROPARIN
     Dosage: 7600 IU, ONCE EVERY 12HR
     Route: 058
     Dates: start: 20220803, end: 20220824
  29. METHYLPREDNISOLONE SODIUM SUCCINATE [Concomitant]
     Active Substance: METHYLPREDNISOLONE SODIUM SUCCINATE
     Indication: Diarrhoea infectious
     Dosage: 100 MG, QD
     Route: 042
     Dates: start: 20220802, end: 20220803
  30. LEVOTHYROXINE NATRIUM [Concomitant]
     Indication: Hypothyroidism
     Dosage: 25 UG, QD
     Route: 048
     Dates: start: 20220722, end: 20220824
  31. POTASSIUM CHLORIDE [Concomitant]
     Active Substance: POTASSIUM CHLORIDE
     Indication: Hypokalaemia
     Dosage: 80.0 MMOL  CONTINUOUS
     Route: 042
     Dates: start: 20220728, end: 20220729
  32. POTASSIUM CHLORIDE [Concomitant]
     Active Substance: POTASSIUM CHLORIDE
     Indication: Diarrhoea
     Dosage: 60.0 MMOL  CONTINUOUS
     Route: 042
     Dates: start: 20220731, end: 20220802
  33. SODIUM CHLORIDE [Concomitant]
     Active Substance: SODIUM CHLORIDE
     Indication: Dehydration
     Dosage: 1000.0 ML  CONTINUOUS
     Route: 042
     Dates: start: 20220728, end: 20220804
  34. SODIUM CHLORIDE [Concomitant]
     Active Substance: SODIUM CHLORIDE
     Dosage: 3000.0 ML  CONTINUOUS
     Route: 042
     Dates: start: 20220802, end: 20220804
  35. METOCLOPERAMIDE [Concomitant]
     Indication: Vomiting
     Dosage: 10.0 MG  3DD IF NEEDED
     Route: 042
     Dates: start: 20220728, end: 20220729
  36. METOCLOPERAMIDE [Concomitant]
     Indication: Nausea
     Dosage: 10 MG, ONCE EVERY 8HR
     Route: 042
     Dates: start: 20220730, end: 20220816
  37. METOCLOPERAMIDE [Concomitant]
     Dosage: 10 MG, SINGLE
     Route: 042
     Dates: start: 20220709, end: 20220710
  38. LORAZEPAM [Concomitant]
     Active Substance: LORAZEPAM
     Indication: Nausea
     Dosage: 0.5 MG  3DD IF NEEDED
     Route: 048
     Dates: start: 20220729, end: 20220802
  39. LORAZEPAM [Concomitant]
     Active Substance: LORAZEPAM
     Dosage: 0.5 MG  2DD IF NEEDED
     Route: 048
     Dates: start: 20220710, end: 20220713
  40. DEXTROSE [Concomitant]
     Active Substance: DEXTROSE\DEXTROSE MONOHYDRATE
     Indication: Hypoglycaemia
     Dosage: 1000.0 ML  CONTINUOUS
     Route: 042
     Dates: start: 20220802, end: 20220804
  41. METRONIDAZOLE [Concomitant]
     Active Substance: METRONIDAZOLE
     Indication: Bacterial infection
     Dosage: 500 MG, ONCE EVERY 8HR
     Route: 042
     Dates: start: 20220802, end: 20220803
  42. METRONIDAZOLE [Concomitant]
     Active Substance: METRONIDAZOLE
     Dosage: 500 MG, ONCE EVERY 8HR
     Route: 042
     Dates: start: 20220802, end: 20220803
  43. RINGER LACTATE [CALCIUM CHLORIDE DIHYDRATE;POTASSIUM CHLORIDE;SODIUM C [Concomitant]
     Indication: Dehydration
     Dosage: 3000.0 ML  CONTINUOUS
     Route: 042
     Dates: start: 20220802, end: 20220802
  44. PLASMA-LYTE 148 [Concomitant]
     Active Substance: MAGNESIUM CHLORIDE\POTASSIUM CHLORIDE\SODIUM ACETATE\SODIUM CHLORIDE\SODIUM GLUCONATE
     Indication: Dehydration
     Dosage: 500.0 ML  CONTINUOUS
     Route: 042
     Dates: start: 20220802, end: 20220804
  45. MAGNESIUM SULFATE [Concomitant]
     Active Substance: MAGNESIUM SULFATE
     Indication: Hypomagnesaemia
     Dosage: 2000.0 MG  EVERY HOUR IF NEEDED
     Route: 042
     Dates: start: 20220802, end: 20220804
  46. SODIUM BICARBONATE [Concomitant]
     Active Substance: SODIUM BICARBONATE
     Indication: Metabolic acidosis
     Dosage: 500 ML, SINGLE
     Route: 042
     Dates: start: 20220802, end: 20220802
  47. SODIUM BICARBONATE [Concomitant]
     Active Substance: SODIUM BICARBONATE
     Dosage: 500 ML, SINGLE
     Route: 042
     Dates: start: 20220803, end: 20220803
  48. NOREPINEPHRINE [Concomitant]
     Active Substance: NOREPINEPHRINE
     Indication: Hypotension
     Dosage: 5 MG  CONTINUOUS
     Route: 042
     Dates: start: 20220802, end: 20220804
  49. MOVICOLON [Concomitant]
     Active Substance: POLYETHYLENE GLYCOL 3350\POTASSIUM CHLORIDE\SODIUM BICARBONATE\SODIUM CHLORIDE
     Indication: Constipation
     Dosage: 13 G, ONCE EVERY 12HR
     Route: 048
     Dates: start: 20220802, end: 20220804
  50. COLISTIN [Concomitant]
     Active Substance: COLISTIN
     Indication: Traction
     Dosage: 1 G, ONCE EVERY 8HR
     Route: 048
     Dates: start: 20220802, end: 20220804
  51. THIAMINE [Concomitant]
     Active Substance: THIAMINE
     Indication: Vitamin B1
     Dosage: 100 MG, QD
     Route: 042
     Dates: start: 20220803, end: 20220809
  52. SODIUM PHOSPHATE [Concomitant]
     Active Substance: SODIUM PHOSPHATE
     Indication: Parenteral nutrition
     Dosage: 15 MMOL, ONCE EVERY 8HR
     Route: 048
     Dates: start: 20220805, end: 20220806
  53. METOCLOPRAMIDE [Concomitant]
     Active Substance: METOCLOPRAMIDE
     Indication: Antiemetic supportive care
     Dosage: 10.0 MG 3DD IF NEEDED
     Route: 054
     Dates: start: 20220701, end: 20220824
  54. METOCLOPRAMIDE [Concomitant]
     Active Substance: METOCLOPRAMIDE
     Indication: Vomiting
  55. METOCLOPRAMIDE [Concomitant]
     Active Substance: METOCLOPRAMIDE
     Indication: Antiemetic supportive care
     Dosage: 10 MG, SINGLE
     Route: 042
     Dates: start: 20220728, end: 20220728
  56. METOCLOPRAMIDE [Concomitant]
     Active Substance: METOCLOPRAMIDE
     Indication: Vomiting
  57. ONDANSETRON [Concomitant]
     Active Substance: ONDANSETRON
     Indication: Nausea
     Dosage: 8 MG, SINGLE
     Route: 042
     Dates: start: 20220709, end: 20220710
  58. LOPERAMIDE [Concomitant]
     Active Substance: LOPERAMIDE
     Indication: Diarrhoea
     Dosage: 2.0 MG 8DD IF NEEDED
     Route: 051
     Dates: start: 20220730, end: 20220822
  59. COLISTIN [Concomitant]
     Active Substance: COLISTIN
     Indication: Traction
     Dosage: 10 ML, ONCE EVERY 8HR
     Route: 051
     Dates: start: 20220802, end: 20220804

REACTIONS (3)
  - Diarrhoea [Recovered/Resolved]
  - Pulmonary embolism [Recovering/Resolving]
  - Vomiting [Recovered/Resolved]

NARRATIVE: CASE EVENT DATE: 20220722
